FAERS Safety Report 7256502-6 (Version None)
Quarter: 2011Q1

REPORT INFORMATION
  Report Type: 
  Country: None (occurrence: None)
  Receive Date: 20110129
  Receipt Date: 20100805
  Transmission Date: 20110831
  Serious: No
  Sender: FDA-Public Use
  Company Number: US-ABBOTT-10P-163-0662410-00

PATIENT
  Age: 34 Year
  Sex: Male

DRUGS (11)
  1. WELLBUTRIN XL [Concomitant]
     Indication: DEPRESSION
  2. FLUTICASONE PROPIONATE [Concomitant]
     Indication: PRODUCT USED FOR UNKNOWN INDICATION
     Dosage: 1 SPRAY EACH NOSTRIL TWICE DAILY
     Route: 045
  3. HUMIRA [Suspect]
     Indication: CROHN'S DISEASE
     Dates: start: 20090801
  4. PROTONIX [Concomitant]
     Indication: CROHN'S DISEASE
     Route: 048
  5. LENECTOL [Concomitant]
     Indication: CROHN'S DISEASE
  6. VICODIN [Concomitant]
     Indication: PRODUCT USED FOR UNKNOWN INDICATION
     Dosage: 5/500 AS NEEDED
     Route: 048
  7. PHENEGRAN [Concomitant]
     Indication: CROHN'S DISEASE
     Route: 048
  8. IMURAN [Concomitant]
     Indication: CROHN'S DISEASE
     Route: 048
  9. XANAX [Concomitant]
     Indication: PANIC ATTACK
     Route: 048
  10. APRISO [Concomitant]
     Indication: COLITIS ULCERATIVE
  11. FENTANYL [Concomitant]
     Indication: PAIN

REACTIONS (6)
  - INJECTION SITE PAIN [None]
  - INJECTION SITE ERYTHEMA [None]
  - INJECTION SITE PRURITUS [None]
  - ABDOMINAL PAIN UPPER [None]
  - INJECTION SITE RASH [None]
  - CHEST PAIN [None]
